FAERS Safety Report 6919752-1 (Version None)
Quarter: 2010Q3

REPORT INFORMATION
  Report Type: 
  Country: None (occurrence: None)
  Receive Date: 20100811
  Receipt Date: 20100802
  Transmission Date: 20110219
  Serious: Yes (Hospitalization)
  Sender: FDA-Public Use
  Company Number: JP-SHIRE-SPV1-2010-01389

PATIENT

DRUGS (12)
  1. LANTHANUM CARBONATE [Suspect]
     Indication: HYPERPHOSPHATAEMIA
     Route: 048
     Dates: start: 20090817, end: 20100204
  2. LANTHANUM CARBONATE [Suspect]
     Dates: start: 20100303
  3. CALCIUM CARBONATE [Concomitant]
     Indication: HYPERPHOSPHATAEMIA
     Dosage: 3000 MG, UNK
     Route: 048
     Dates: start: 20090817
  4. ROCALTROL [Concomitant]
     Dosage: .25 UG, UNK
     Route: 048
     Dates: start: 20090817, end: 20091122
  5. ALFAROL [Concomitant]
     Dosage: .25 UG, UNK
     Route: 048
     Dates: start: 20091123
  6. CINACALCET HYDROCHLORIDE [Concomitant]
     Indication: HYPERPARATHYROIDISM SECONDARY
     Dosage: 50 MG, UNK
     Route: 048
     Dates: start: 20090817, end: 20100103
  7. CINACALCET HYDROCHLORIDE [Concomitant]
     Dosage: 75 MG, UNK
     Route: 048
     Dates: start: 20100104
  8. KALIMATE [Concomitant]
     Dosage: 2 DF, UNK
     Route: 048
  9. ZYLORIC [Concomitant]
     Dosage: 100 MG, UNK
     Route: 048
  10. ASPIRIN [Concomitant]
     Dosage: 100 MG, UNK
     Route: 048
  11. DIOVAN [Concomitant]
     Dosage: 80 MG, UNK
     Route: 048
  12. RENAGEL [Concomitant]
     Indication: HYPERPHOSPHATAEMIA
     Dosage: 6000 MG, UNK
     Route: 048

REACTIONS (1)
  - GASTRIC ULCER HAEMORRHAGE [None]
